FAERS Safety Report 7635167-5 (Version None)
Quarter: 2011Q3

REPORT INFORMATION
  Report Type: 
  Country: None (occurrence: None)
  Receive Date: 20110726
  Receipt Date: 20110718
  Transmission Date: 20111222
  Serious: Yes (Death, Other)
  Sender: FDA-Public Use
  Company Number: US-BAYER-200930372NA

PATIENT
  Age: 82 Year
  Sex: Female
  Weight: 81.633 kg

DRUGS (21)
  1. COUMADIN [Concomitant]
  2. FENTANYL [Concomitant]
     Dosage: 8ML
     Route: 042
  3. MANNITOL [Concomitant]
  4. CONTRAST MEDIA [Concomitant]
     Indication: ARTERIOGRAM CORONARY
     Dosage: UNK
     Dates: start: 20070702
  5. TRASYLOL [Suspect]
     Indication: CORONARY ARTERY BYPASS
  6. NORVASC [Concomitant]
     Dosage: 5 MG, QD
     Route: 048
  7. TRASYLOL [Suspect]
     Indication: TRICUSPID VALVE REPAIR
     Dosage: LOADING DOSE - 250 ML, INFUSION RATE NOT GIVEN. NOTED ? DOSE GIVEN AT 0700
  8. LASIX [Concomitant]
     Dosage: 40 MG, QD
     Route: 048
  9. CARVEDILOL [Concomitant]
     Dosage: 3.125 MG, BID
     Route: 048
  10. NIFEREX [Concomitant]
     Dosage: 150 MG, BID
     Route: 048
  11. PROTONIX [Concomitant]
     Dosage: UNK
     Route: 042
     Dates: start: 20070906
  12. AMLODIPINE [Concomitant]
     Dosage: 5 MG, QD
     Route: 048
  13. TRASYLOL [Suspect]
     Indication: PRODUCT USED FOR UNKNOWN INDICATION
     Dosage: TEST DOSE - 1 ML FOLLOWED BY 100ML PUMP PRIME
     Route: 042
     Dates: start: 20070906, end: 20070906
  14. PROTAMINE SULFATE [Concomitant]
     Dosage: 400MG
     Route: 042
     Dates: start: 20070906
  15. LOVENOX [Concomitant]
     Dosage: 40 MG, QD
     Route: 058
     Dates: start: 20070701
  16. INSULIN [Concomitant]
     Dosage: 8 UNITS/HR
     Route: 042
     Dates: start: 20070906
  17. HEPARIN [Concomitant]
     Dosage: 50MG
     Dates: start: 20070906
  18. HEPARIN [Concomitant]
     Dosage: 300MG
     Dates: start: 20070906
  19. DIOVAN [Concomitant]
     Dosage: 80 MG, BID
     Route: 048
  20. HEPARIN [Concomitant]
     Dosage: 350MG
     Route: 042
     Dates: start: 20070906
  21. ZOCOR [Concomitant]
     Dosage: 40 MG, QD
     Route: 048

REACTIONS (13)
  - RENAL FAILURE [None]
  - ANXIETY [None]
  - UNEVALUABLE EVENT [None]
  - PAIN [None]
  - DEATH [None]
  - MULTI-ORGAN FAILURE [None]
  - EMOTIONAL DISTRESS [None]
  - STRESS [None]
  - FEAR [None]
  - ANHEDONIA [None]
  - RENAL IMPAIRMENT [None]
  - RENAL INJURY [None]
  - INJURY [None]
